FAERS Safety Report 8210650-2 (Version None)
Quarter: 2012Q1

REPORT INFORMATION
  Report Type: 
  Country: None (occurrence: None)
  Receive Date: 20120314
  Receipt Date: 20120305
  Transmission Date: 20120608
  Serious: Yes (Other)
  Sender: FDA-Public Use
  Company Number: US-ASTRAZENECA-2012SE13489

PATIENT
  Age: 44 Year
  Sex: Male

DRUGS (3)
  1. PRILOSEC [Suspect]
     Route: 048
  2. ZANTAC [Concomitant]
  3. NEXIUM [Suspect]
     Route: 048

REACTIONS (3)
  - SELF-MEDICATION [None]
  - OESOPHAGEAL PERFORATION [None]
  - WRONG DRUG ADMINISTERED [None]
